FAERS Safety Report 5069977-8 (Version None)
Quarter: 2006Q3

REPORT INFORMATION
  Report Type: 
  Country: None (occurrence: None)
  Receive Date: 20060731
  Receipt Date: 20060717
  Transmission Date: 20061208
  Serious: Yes (Death, Congenital Anomaly)
  Sender: FDA-Public Use
  Company Number: 6024274

PATIENT
  Sex: Female

DRUGS (6)
  1. LEVOTHYROXINE SODIUM [Suspect]
     Indication: DRUG EXPOSURE DURING PREGNANCY
     Dosage: TRANSPLACENTAL
     Route: 064
  2. FOZIRETIC (TABLET) (HYDROCHLOROTHIAZIDE, FOSINOPRIL SODIUM) [Suspect]
     Indication: DRUG EXPOSURE DURING PREGNANCY
     Dosage: TRANSPLACENTAL
     Route: 064
     Dates: end: 20030131
  3. ALPRAZOLAM [Suspect]
     Indication: DRUG EXPOSURE DURING PREGNANCY
     Dosage: TRANSPLACENTAL
     Route: 064
     Dates: end: 20030131
  4. ADEPAL (TABLET) (ETHINYLESTRADIOL, LEVONORGESTREL) [Suspect]
     Indication: DRUG EXPOSURE DURING PREGNANCY
     Dosage: TRANSPLACENTAL
     Route: 064
     Dates: end: 20030131
  5. CLONIDINE [Suspect]
     Indication: DRUG EXPOSURE DURING PREGNANCY
     Dosage: TRANSPLACENTAL
     Route: 064
     Dates: start: 20030201
  6. LORAZEPAM [Suspect]
     Indication: DRUG EXPOSURE DURING PREGNANCY
     Dosage: TRANSPLACENTAL
     Route: 064
     Dates: start: 20030201

REACTIONS (11)
  - ABORTION INDUCED [None]
  - CONGENITAL GENITOURINARY ABNORMALITY [None]
  - CONGENITAL UTERINE ANOMALY [None]
  - DIVERTICULITIS MECKEL'S [None]
  - DRUG EXPOSURE DURING PREGNANCY [None]
  - MULTIPLE CONGENITAL ABNORMALITIES [None]
  - OLIGOHYDRAMNIOS [None]
  - POTTER'S SYNDROME [None]
  - PULMONARY HYPOPLASIA [None]
  - RENAL DYSPLASIA [None]
  - RENAL HYPERTROPHY [None]
